FAERS Safety Report 14753289 (Version 1)
Quarter: 2018Q2

REPORT INFORMATION
  Report Type: Spontaneous
  Country: US (occurrence: US)
  Receive Date: 20180412
  Receipt Date: 20180412
  Transmission Date: 20180711
  Serious: No
  Sender: FDA-Public Use
  Company Number: US-ALLERGAN-1802470US

PATIENT
  Age: 59 Year
  Sex: Female
  Weight: 88.44 kg

DRUGS (5)
  1. FEMRING [Suspect]
     Active Substance: ESTRADIOL ACETATE
     Indication: POSTOPERATIVE WOUND INFECTION
     Dosage: UNK
     Route: 067
  2. CYCLOBENZAPRINE. [Concomitant]
     Active Substance: CYCLOBENZAPRINE
     Indication: MUSCLE RELAXANT THERAPY
     Dosage: UNK
     Route: 065
  3. RAMIPRIL. [Concomitant]
     Active Substance: RAMIPRIL
     Indication: HYPERTENSION
     Dosage: UNK
     Route: 048
  4. SYNTHROID [Concomitant]
     Active Substance: LEVOTHYROXINE SODIUM
     Indication: HYPOTHYROIDISM
     Dosage: UNK
     Route: 048
  5. OMEPRAZOLE. [Concomitant]
     Active Substance: OMEPRAZOLE
     Indication: PRODUCT USED FOR UNKNOWN INDICATION
     Dosage: UNK
     Route: 048

REACTIONS (4)
  - Irritability [Unknown]
  - Headache [Unknown]
  - Eye pain [Unknown]
  - Drug dose omission [Unknown]

NARRATIVE: CASE EVENT DATE: 201801
